FAERS Safety Report 18267199 (Version 1)
Quarter: 2020Q3

REPORT INFORMATION
  Report Type: Spontaneous
  Country: US (occurrence: US)
  Receive Date: 20200914
  Receipt Date: 20200914
  Transmission Date: 20201103
  Serious: Yes (Hospitalization, Other)
  Sender: FDA-Public Use
  Company Number: None

PATIENT
  Age: 66 Year
  Sex: Male
  Weight: 96.75 kg

DRUGS (15)
  1. EVEROLIMUS. [Suspect]
     Active Substance: EVEROLIMUS
     Indication: PANCREATIC CARCINOMA
     Route: 048
     Dates: start: 20200815
  2. ASPIRIN 81 MG [Concomitant]
     Active Substance: ASPIRIN
  3. FERROUS SULFATE 325MG [Concomitant]
     Active Substance: FERROUS SULFATE
  4. FLUTICASONE 50MCG [Concomitant]
     Active Substance: FLUTICASONE
  5. MULTIVITAMIN [Concomitant]
     Active Substance: VITAMINS
  6. NITROGLYCERIN 0.4MG [Concomitant]
  7. ATROPINE SULFATE 1% [Concomitant]
     Active Substance: ATROPINE SULFATE
  8. ZETIA 10 [Concomitant]
  9. WARFARIN 4MG [Concomitant]
     Active Substance: WARFARIN
  10. FLUDROCORTISONE 0.1MG [Concomitant]
  11. NOROC 5?325MG [Concomitant]
  12. PANTOPRAZOLE 40MG [Concomitant]
     Active Substance: PANTOPRAZOLE SODIUM
  13. NOVOLOG [Concomitant]
     Active Substance: INSULIN ASPART
  14. LANTUS SOLOSTAR [Concomitant]
     Active Substance: INSULIN GLARGINE
  15. DIPHENHYDRAMINE 50MG [Concomitant]
     Active Substance: DIPHENHYDRAMINE

REACTIONS (4)
  - International normalised ratio increased [None]
  - Haemoglobin decreased [None]
  - Gastrointestinal ulcer haemorrhage [None]
  - Malaise [None]

NARRATIVE: CASE EVENT DATE: 20200904
